FAERS Safety Report 7483581-3 (Version None)
Quarter: 2011Q2

REPORT INFORMATION
  Report Type: 
  Country: None (occurrence: None)
  Receive Date: 20110517
  Receipt Date: 20110512
  Transmission Date: 20111010
  Serious: No
  Sender: FDA-Public Use
  Company Number: US-PFIZER INC-2011103156

PATIENT
  Sex: Male
  Weight: 140.59 kg

DRUGS (5)
  1. VIGAM [Concomitant]
     Indication: NERVOUS SYSTEM DISORDER
     Dosage: UNKNOWN DOSE TWO TIMES A DAY
  2. VICODIN ES [Concomitant]
     Dosage: 500 MG, UNK
  3. ROBAXIN [Concomitant]
     Indication: MYALGIA
     Dosage: UNKNOWN DOSE AS NEEDED
     Route: 048
  4. LYRICA [Suspect]
     Indication: NERVE INJURY
     Dosage: 300 MG, 2X/DAY
     Route: 048
  5. VICODIN ES [Concomitant]
     Indication: MYALGIA
     Dosage: 7.5/500 MG, 2X/DAY
     Route: 048

REACTIONS (2)
  - PAIN [None]
  - PRODUCT PACKAGING ISSUE [None]
